FAERS Safety Report 8277961-6 (Version None)
Quarter: 2012Q2

REPORT INFORMATION
  Report Type: 
  Country: None (occurrence: None)
  Receive Date: 20120412
  Receipt Date: 20120410
  Transmission Date: 20120825
  Serious: Yes (Hospitalization)
  Sender: FDA-Public Use
  Company Number: CN-JNJFOC-20120403335

PATIENT
  Sex: Male

DRUGS (1)
  1. SPORANOX [Suspect]
     Indication: LYMPHOCYTIC LEUKAEMIA
     Dosage: (IV, 25ML, IVL)
     Route: 042
     Dates: start: 20120403, end: 20120403

REACTIONS (2)
  - SHOCK [None]
  - LARYNGEAL OEDEMA [None]
